FAERS Safety Report 20899916 (Version 1)
Quarter: 2022Q2

REPORT INFORMATION
  Report Type: Spontaneous
  Country: US (occurrence: None)
  Receive Date: 20220531
  Receipt Date: 20220531
  Transmission Date: 20220721
  Serious: No
  Sender: FDA-Public Use
  Company Number: None

PATIENT
  Age: 70 Year
  Sex: Female

DRUGS (1)
  1. SIMPONI [Suspect]
     Active Substance: GOLIMUMAB
     Indication: Rheumatoid arthritis
     Dosage: 50MG ONCE MONTHLY UNDER THE SKIN
     Route: 058

REACTIONS (3)
  - Joint swelling [None]
  - Arthralgia [None]
  - Therapy non-responder [None]

NARRATIVE: CASE EVENT DATE: 20220101
